FAERS Safety Report 4641800-2 (Version None)
Quarter: 2005Q2

REPORT INFORMATION
  Report Type: 
  Country: None (occurrence: None)
  Receive Date: 20050421
  Receipt Date: 20050127
  Transmission Date: 20051028
  Serious: Yes (Death)
  Sender: FDA-Public Use
  Company Number: 213781

PATIENT
  Sex: Female

DRUGS (1)
  1. XOLAIR [Suspect]
     Indication: FOOD ALLERGY
     Dates: start: 20040601, end: 20040801

REACTIONS (2)
  - ANAPHYLACTIC REACTION [None]
  - FOOD ALLERGY [None]
